FAERS Safety Report 24927373 (Version 1)
Quarter: 2025Q1

REPORT INFORMATION
  Report Type: Spontaneous
  Country: TR (occurrence: TR)
  Receive Date: 20250205
  Receipt Date: 20250205
  Transmission Date: 20250408
  Serious: Yes (Congenital Anomaly)
  Sender: NOVO NORDISK
  Company Number: TR-NOVOPROD-1360622

PATIENT

DRUGS (1)
  1. SAXENDA [Suspect]
     Active Substance: LIRAGLUTIDE
     Indication: Product used for unknown indication
     Dosage: 1.8 MG, QD
     Route: 064

REACTIONS (2)
  - Foetal chromosome abnormality [Unknown]
  - Foetal exposure during pregnancy [Recovered/Resolved]
